FAERS Safety Report 8356991-X (Version None)
Quarter: 2012Q2

REPORT INFORMATION
  Report Type: 
  Country: None (occurrence: None)
  Receive Date: 20120510
  Receipt Date: 20120501
  Transmission Date: 20120825
  Serious: Yes (Life-Threatening)
  Sender: FDA-Public Use
  Company Number: 2012SP023175

PATIENT
  Sex: Male

DRUGS (1)
  1. TEMODAR [Suspect]
     Indication: GLIOBLASTOMA

REACTIONS (3)
  - MYOCARDIAL INFARCTION [None]
  - DISEASE RECURRENCE [None]
  - GLIOBLASTOMA [None]
